FAERS Safety Report 9140874 (Version 1)
Quarter: 2013Q1

REPORT INFORMATION
  Report Type: Not Available
  Country: FR (occurrence: FR)
  Receive Date: 20130305
  Receipt Date: 20130305
  Transmission Date: 20140127
  Serious: Yes (Hospitalization)
  Sender: FDA-Public Use
  Company Number: FR-NAPPMUNDI-GBR-2013-0013300

PATIENT
  Age: 98 Year
  Sex: Female

DRUGS (12)
  1. OXYCONTIN [Suspect]
     Indication: PRODUCT USED FOR UNKNOWN INDICATION
     Dosage: 10 MG, DAILY
     Route: 048
     Dates: start: 20121221, end: 20130115
  2. CEFTRIAXONE [Suspect]
     Indication: PNEUMOCOCCAL SEPSIS
     Dosage: 2 G, DAILY
     Route: 042
     Dates: start: 20121215, end: 20130115
  3. TAVANIC [Suspect]
     Indication: PNEUMOCOCCAL SEPSIS
     Dosage: 500 MG, DAILY
     Route: 048
     Dates: start: 20121219, end: 20130115
  4. RIMACTANE [Suspect]
     Indication: PNEUMOCOCCAL SEPSIS
     Dosage: 300 MG, DAILY
     Route: 048
     Dates: start: 20130102, end: 20130115
  5. SERESTA [Concomitant]
  6. EUPANTOL [Concomitant]
  7. UVEDOSE [Concomitant]
     Route: 048
  8. CALCIPARINE [Concomitant]
     Route: 042
  9. RAMIPRIL [Concomitant]
  10. LASILIX                            /00032601/ [Concomitant]
  11. SPASFON /00765801/ [Concomitant]
  12. MOVICOL                            /01625101/ [Concomitant]

REACTIONS (2)
  - Rash macular [Recovered/Resolved]
  - Eosinophilia [Recovered/Resolved]
